FAERS Safety Report 5716287-9 (Version None)
Quarter: 2008Q2

REPORT INFORMATION
  Report Type: 
  Country: None (occurrence: None)
  Receive Date: 20080424
  Receipt Date: 20080418
  Transmission Date: 20081010
  Serious: Yes (Hospitalization)
  Sender: FDA-Public Use
  Company Number: B0517233A

PATIENT
  Age: 52 Year
  Sex: Female

DRUGS (8)
  1. PAXIL [Suspect]
     Indication: ANXIETY DISORDER
     Dosage: 20MG PER DAY
     Route: 048
  2. PROCHLORPERAZINE [Suspect]
     Indication: VOMITING
     Route: 065
  3. SULPIRIDE [Suspect]
     Indication: ANOREXIA
     Dosage: 80MG PER DAY
     Route: 065
  4. METOCLOPRAMIDE [Suspect]
     Indication: VOMITING
     Route: 065
  5. BUCILLAMINE [Suspect]
     Indication: RHEUMATOID ARTHRITIS
     Route: 048
  6. CISPLATIN [Suspect]
     Indication: CERVIX CARCINOMA
     Dosage: 50MG PER DAY
     Route: 065
  7. ETHYL LOFLAZEPATE [Concomitant]
     Indication: ANXIETY DISORDER
     Dosage: 1MG PER DAY
     Route: 048
  8. DIAZEPAM [Concomitant]
     Indication: ANXIETY DISORDER
     Dosage: 6MG PER DAY
     Route: 065

REACTIONS (5)
  - AKATHISIA [None]
  - AMIMIA [None]
  - DYSARTHRIA [None]
  - DYSLALIA [None]
  - EXTRAPYRAMIDAL DISORDER [None]
